FAERS Safety Report 9696931 (Version 2)
Quarter: 2013Q4

REPORT INFORMATION
  Report Type: Spontaneous
  Country: US (occurrence: US)
  Receive Date: 20131119
  Receipt Date: 20131119
  Transmission Date: 20140711
  Serious: No
  Sender: FDA-Public Use
  Company Number: US-GILEAD-2007-0013999

PATIENT
  Sex: Female

DRUGS (1)
  1. LETAIRIS [Suspect]
     Indication: PULMONARY ARTERIAL HYPERTENSION

REACTIONS (7)
  - Low density lipoprotein increased [Unknown]
  - Nasopharyngitis [Unknown]
  - Cough [Unknown]
  - Weight increased [Unknown]
  - Rhinorrhoea [Unknown]
  - Nasal congestion [Unknown]
  - Fluid retention [Unknown]
